FAERS Safety Report 16625646 (Version 1)
Quarter: 2019Q3

REPORT INFORMATION
  Report Type: Spontaneous
  Country: US (occurrence: US)
  Receive Date: 20190724
  Receipt Date: 20190724
  Transmission Date: 20191004
  Serious: Yes (Disabling)
  Sender: FDA-Public Use
  Company Number: None

PATIENT
  Age: 56 Year
  Sex: Female
  Weight: 58.05 kg

DRUGS (11)
  1. MAXALT [Concomitant]
     Active Substance: RIZATRIPTAN BENZOATE
  2. PARAFON FORTE [Concomitant]
     Active Substance: CHLORZOXAZONE
  3. AIMOVIG [Suspect]
     Active Substance: ERENUMAB-AOOE
     Indication: MIGRAINE
     Dates: start: 20180718, end: 20181218
  4. TRULANCE 3MG [Concomitant]
  5. DECADRON [Concomitant]
     Active Substance: DEXAMETHASONE
  6. LIDODERM [Concomitant]
     Active Substance: LIDOCAINE
  7. ZANAFLEX [Concomitant]
     Active Substance: TIZANIDINE HYDROCHLORIDE
  8. PHENERGAN [Concomitant]
     Active Substance: PROMETHAZINE HYDROCHLORIDE
  9. NALTREXONE [Concomitant]
     Active Substance: NALTREXONE
  10. VOLTAREN [Concomitant]
     Active Substance: DICLOFENAC SODIUM
  11. METHOTREXATE 2.5 MG [Concomitant]
     Active Substance: METHOTREXATE

REACTIONS (4)
  - Abdominal pain [None]
  - Constipation [None]
  - Weight decreased [None]
  - Hypophagia [None]

NARRATIVE: CASE EVENT DATE: 20181123
